FAERS Safety Report 14962801 (Version 2)
Quarter: 2018Q2

REPORT INFORMATION
  Report Type: Spontaneous
  Country: MX (occurrence: MX)
  Receive Date: 20180601
  Receipt Date: 20180627
  Transmission Date: 20180711
  Serious: Yes (Hospitalization)
  Sender: FDA-Public Use
  Company Number: MX-ROCHE-2133255

PATIENT
  Age: 9 Year
  Sex: Male
  Weight: 48.3 kg

DRUGS (5)
  1. LEVOCETIRIZINE [Concomitant]
     Active Substance: LEVOCETIRIZINE
     Indication: PRODUCT USED FOR UNKNOWN INDICATION
     Dosage: UNK (OCCASIONALLY)
     Route: 065
  2. OMALIZUMAB. [Suspect]
     Active Substance: OMALIZUMAB
     Route: 058
     Dates: start: 20180316, end: 201804
  3. SALBUTAMOL [Concomitant]
     Active Substance: ALBUTEROL
     Indication: PRODUCT USED FOR UNKNOWN INDICATION
     Dosage: UNK
     Route: 065
  4. RUPATADINE [Concomitant]
     Active Substance: RUPATADINE
     Indication: PRODUCT USED FOR UNKNOWN INDICATION
     Dosage: UNK (OCCASIONALLY)
     Route: 065
  5. OMALIZUMAB. [Suspect]
     Active Substance: OMALIZUMAB
     Indication: ASTHMA
     Route: 058
     Dates: start: 201705

REACTIONS (21)
  - Albumin globulin ratio decreased [Unknown]
  - Face oedema [Unknown]
  - Nephrotic syndrome [Recovering/Resolving]
  - Infection [Unknown]
  - Urine phosphorus increased [Unknown]
  - Urinary sediment present [Unknown]
  - Blood glucose increased [Unknown]
  - Oedema genital [Unknown]
  - Blood urine present [Unknown]
  - Complement factor C3 increased [Unknown]
  - Blood triglycerides increased [Unknown]
  - Blood cholesterol increased [Unknown]
  - Urine abnormality [Unknown]
  - Bacterial test positive [Unknown]
  - Protein urine present [Unknown]
  - Urine leukocyte esterase positive [Unknown]
  - Nephritic syndrome [Recovering/Resolving]
  - Red blood cell sedimentation rate increased [Unknown]
  - Oedema peripheral [Unknown]
  - Protein total decreased [Unknown]
  - Blood urea increased [Unknown]

NARRATIVE: CASE EVENT DATE: 20171206
